FAERS Safety Report 4502759-1 (Version None)
Quarter: 2004Q4

REPORT INFORMATION
  Report Type: 
  Country: None (occurrence: None)
  Receive Date: 20041116
  Receipt Date: 20041108
  Transmission Date: 20050328
  Serious: Yes (Life-Threatening, Hospitalization, Disabling)
  Sender: FDA-Public Use
  Company Number: US-MERCK-0411USA01509

PATIENT
  Age: 44 Year
  Sex: Female

DRUGS (3)
  1. VIOXX [Suspect]
     Indication: ARTHRITIS
     Route: 048
     Dates: end: 20041001
  2. VALIUM [Concomitant]
     Route: 065
  3. EFFEXOR [Concomitant]
     Route: 065

REACTIONS (3)
  - CARDIAC ARREST [None]
  - HYPOAESTHESIA [None]
  - THROMBOSIS [None]
